FAERS Safety Report 21095856 (Version 1)
Quarter: 2022Q3

REPORT INFORMATION
  Report Type: Other
  Country: JP (occurrence: JP)
  Receive Date: 20220718
  Receipt Date: 20220718
  Transmission Date: 20221026
  Serious: Yes (Death)
  Sender: FDA-Public Use
  Company Number: JP-CHUGAI-2022027704

PATIENT
  Age: 5 Decade
  Sex: Male

DRUGS (2)
  1. ACTEMRA [Suspect]
     Active Substance: TOCILIZUMAB
     Indication: Castleman^s disease
     Dosage: UNK
     Route: 065
  2. FENTANYL CITRATE [Concomitant]
     Active Substance: FENTANYL CITRATE
     Indication: Abdominal pain
     Dosage: UNK
     Route: 042

REACTIONS (3)
  - Bronchopulmonary aspergillosis [Fatal]
  - Duodenal perforation [Fatal]
  - Off label use [Unknown]
